FAERS Safety Report 8735940 (Version 3)
Quarter: 2012Q4

REPORT INFORMATION
  Report Type: 
  Country: US (occurrence: US)
  Receive Date: 20120822
  Receipt Date: 20120913
  Transmission Date: 20130627
  Serious: Yes (Other)
  Sender: FDA-Public Use
  Company Number: US-PFIZER INC-2012200835

PATIENT
  Age: 22 Year

DRUGS (1)
  1. NEURONTIN [Suspect]
     Dosage: 100 mg, 2x/day
     Route: 048

REACTIONS (4)
  - Convulsion [Unknown]
  - Headache [Unknown]
  - Musculoskeletal stiffness [Unknown]
  - Tremor [Unknown]
